FAERS Safety Report 18679767 (Version 3)
Quarter: 2021Q1

REPORT INFORMATION
  Report Type: Spontaneous
  Country: BR (occurrence: BR)
  Receive Date: 20201229
  Receipt Date: 20210112
  Transmission Date: 20210419
  Serious: Yes (Other)
  Sender: FDA-Public Use
  Company Number: NVSC2020BR343149

PATIENT
  Age: 46 Year
  Sex: Male

DRUGS (3)
  1. TEGRETOL XR [Suspect]
     Active Substance: CARBAMAZEPINE
     Dosage: 200 MG, UNKNOWN
     Route: 048
  2. TEGRETOL XR [Suspect]
     Active Substance: CARBAMAZEPINE
     Indication: EPILEPSY
     Dosage: 0.5 DF, UNKNOWN
     Route: 065
     Dates: start: 20201125, end: 20201204
  3. RIVOTRIL [Concomitant]
     Active Substance: CLONAZEPAM
     Indication: EPILEPSY
     Dosage: 40 MG, BID (STARTED 14 YEARS AGO)
     Route: 048

REACTIONS (12)
  - Tachycardia [Recovered/Resolved]
  - Neck pain [Not Recovered/Not Resolved]
  - Blister [Recovered/Resolved]
  - General physical health deterioration [Unknown]
  - Erythema [Not Recovered/Not Resolved]
  - Myelopathy [Not Recovered/Not Resolved]
  - Pain [Not Recovered/Not Resolved]
  - Rash papular [Recovered/Resolved]
  - Herpes zoster reactivation [Not Recovered/Not Resolved]
  - Pyrexia [Recovered/Resolved]
  - Arthralgia [Not Recovered/Not Resolved]
  - Wrong technique in product usage process [Unknown]

NARRATIVE: CASE EVENT DATE: 20201125
